FAERS Safety Report 12202367 (Version 10)
Quarter: 2016Q4

REPORT INFORMATION
  Report Type: Spontaneous
  Country: US (occurrence: US)
  Receive Date: 20160322
  Receipt Date: 20161229
  Transmission Date: 20170207
  Serious: Yes (Congenital Anomaly, Other)
  Sender: FDA-Public Use
  Company Number: PHEH2016US006825

PATIENT
  Sex: Female

DRUGS (3)
  1. ZOFRAN [Suspect]
     Active Substance: ONDANSETRON HYDROCHLORIDE
     Indication: FOETAL EXPOSURE DURING PREGNANCY
     Dosage: MOTHER DOSE: 04 MG, QID, 08 MG, TID
     Route: 064
  2. ZOFRAN [Suspect]
     Active Substance: ONDANSETRON HYDROCHLORIDE
     Indication: FOETAL EXPOSURE DURING PREGNANCY
     Route: 064
  3. ZOFRAN ODT [Suspect]
     Active Substance: ONDANSETRON HYDROCHLORIDE
     Indication: FOETAL EXPOSURE DURING PREGNANCY
     Dosage: MOTHER DOSE: 4 MG TO 8 MG, THRICE DAILY (TID)
     Route: 064

REACTIONS (31)
  - Microgenia [Unknown]
  - Apnoea [Unknown]
  - Transient tachypnoea of the newborn [Unknown]
  - Anhedonia [Unknown]
  - Jaundice [Unknown]
  - Injury [Unknown]
  - Weight increased [Unknown]
  - Ocular hyperaemia [Unknown]
  - Dysmorphism [Unknown]
  - Foetal exposure during pregnancy [Unknown]
  - Eye pruritus [Unknown]
  - Eczema [Unknown]
  - Regurgitation [Unknown]
  - Congenital anomaly [Unknown]
  - Congenital tongue anomaly [Unknown]
  - Amblyopia congenital [Unknown]
  - Deafness [Unknown]
  - Lacrimation increased [Unknown]
  - Cleft palate [Unknown]
  - Craniofacial deformity [Unknown]
  - Asthma [Unknown]
  - Bronchitis [Unknown]
  - Eustachian tube dysfunction [Unknown]
  - Pierre Robin syndrome [Unknown]
  - Coeliac disease [Unknown]
  - Emotional distress [Unknown]
  - Gastrooesophageal reflux disease [Unknown]
  - Pain [Unknown]
  - Otitis media acute [Unknown]
  - Anxiety [Unknown]
  - Diarrhoea [Unknown]
